FAERS Safety Report 14892898 (Version 1)
Quarter: 2018Q2

REPORT INFORMATION
  Report Type: Spontaneous
  Country: US (occurrence: US)
  Receive Date: 20180509
  Receipt Date: 20180509
  Transmission Date: 20180711
  Serious: Yes (Other)
  Sender: FDA-Public Use
  Company Number: None

PATIENT
  Age: 66 Year
  Sex: Male
  Weight: 84.9 kg

DRUGS (6)
  1. CEFEPIME [Suspect]
     Active Substance: CEFEPIME HYDROCHLORIDE
     Indication: OSTEOMYELITIS
     Route: 042
     Dates: start: 20180109, end: 20180221
  2. ASPIRIN. [Concomitant]
     Active Substance: ASPIRIN
  3. METOPROLOL ER [Concomitant]
     Active Substance: METOPROLOL SUCCINATE
  4. FLUCONAZOLE. [Concomitant]
     Active Substance: FLUCONAZOLE
  5. AMLODIPINE [Concomitant]
     Active Substance: AMLODIPINE BESYLATE
  6. VANCOMYCIN [Concomitant]
     Active Substance: VANCOMYCIN

REACTIONS (1)
  - Neutropenia [None]

NARRATIVE: CASE EVENT DATE: 20180205
